FAERS Safety Report 8798054 (Version 3)
Quarter: 2012Q4

REPORT INFORMATION
  Report Type: 
  Country: US (occurrence: US)
  Receive Date: 20120920
  Receipt Date: 20121102
  Transmission Date: 20130627
  Serious: Yes (Other)
  Sender: FDA-Public Use
  Company Number: US-ELI_LILLY_AND_COMPANY-US201209003007

PATIENT
  Age: 50 Year
  Sex: Female

DRUGS (7)
  1. CYMBALTA [Suspect]
     Indication: FIBROMYALGIA
     Dosage: 30 mg, qd
     Dates: start: 201204
  2. CYMBALTA [Suspect]
     Dosage: 60 mg, qd
     Dates: end: 20120813
  3. ABILIFY [Concomitant]
     Dosage: 10 mg, unknown
  4. PRILOSEC [Concomitant]
     Dosage: 1 DF, bid
  5. PREDNISONE [Concomitant]
     Indication: ARTHRITIS
  6. TYLENOL [Interacting]
  7. CORTISONE [Concomitant]

REACTIONS (47)
  - Anaphylactic reaction [Unknown]
  - Pharyngeal oedema [Unknown]
  - Dyspnoea [Unknown]
  - Dysphagia [Unknown]
  - Staphylococcal infection [Unknown]
  - Staphylococcal scalded skin syndrome [Not Recovered/Not Resolved]
  - Drug interaction [Unknown]
  - Skin exfoliation [Unknown]
  - Wound [Unknown]
  - Vaginal exfoliation [Unknown]
  - Capillary fragility [Unknown]
  - Vaginal haemorrhage [Unknown]
  - Haemorrhagic cyst [Unknown]
  - Breast pain [Unknown]
  - Drug level increased [Unknown]
  - Post-traumatic stress disorder [Unknown]
  - Abnormal dreams [Unknown]
  - Nightmare [Unknown]
  - Hallucination [Unknown]
  - Malaise [Unknown]
  - Scar [Unknown]
  - Limb asymmetry [Unknown]
  - Sensation of blood flow [Unknown]
  - Abdominal distension [Unknown]
  - Back pain [Unknown]
  - Headache [Unknown]
  - Delirium [Unknown]
  - Crying [Unknown]
  - Panic reaction [Unknown]
  - Oedema [Unknown]
  - Drug withdrawal syndrome [Unknown]
  - Toxicity to various agents [Unknown]
  - Visual impairment [Unknown]
  - Madarosis [Unknown]
  - Alopecia [Unknown]
  - Anxiety [Unknown]
  - Vulvovaginal swelling [Unknown]
  - Breast swelling [Unknown]
  - Injection site reaction [Unknown]
  - Hyperhidrosis [Unknown]
  - Dry mouth [Unknown]
  - Skin disorder [Unknown]
  - Temperature regulation disorder [Unknown]
  - Pyrexia [Unknown]
  - Delusion [Unknown]
  - Asthenia [Unknown]
  - Oral mucosal discolouration [Unknown]
